FAERS Safety Report 6421949-4 (Version None)
Quarter: 2009Q4

REPORT INFORMATION
  Report Type: 
  Country: None (occurrence: None)
  Receive Date: 20091030
  Receipt Date: 20091028
  Transmission Date: 20100525
  Serious: Yes (Death)
  Sender: FDA-Public Use
  Company Number: US-BAYER-200916046BCC

PATIENT
  Age: 55 Year
  Sex: Male

DRUGS (2)
  1. ASPIRIN [Suspect]
     Indication: ACUTE CORONARY SYNDROME
     Dosage: TOTAL DAILY DOSE: 81 MG  UNIT DOSE: 81 MG
     Route: 065
  2. PLAVIX [Suspect]
     Indication: ACUTE CORONARY SYNDROME
     Dosage: TOTAL DAILY DOSE: 75 MG  UNIT DOSE: 75 MG
     Route: 048

REACTIONS (1)
  - CEREBRAL HAEMORRHAGE [None]
